FAERS Safety Report 5569500-5 (Version None)
Quarter: 2007Q4

REPORT INFORMATION
  Report Type: 
  Country: None (occurrence: None)
  Receive Date: 20071220
  Receipt Date: 20071210
  Transmission Date: 20080405
  Serious: Yes (Death)
  Sender: FDA-Public Use
  Company Number: FR-AMGEN-UK257043

PATIENT
  Age: 86 Year
  Sex: Male

DRUGS (2)
  1. ARANESP [Suspect]
     Indication: RENAL FAILURE CHRONIC
     Route: 058
     Dates: start: 20071009, end: 20071120
  2. ORAL ANTICOAGULANT NOS [Concomitant]

REACTIONS (1)
  - SUBDURAL HAEMATOMA [None]
